FAERS Safety Report 11847432 (Version 10)
Quarter: 2016Q2

REPORT INFORMATION
  Report Type: Report from Study
  Country: PL (occurrence: PL)
  Receive Date: 20151217
  Receipt Date: 20160615
  Transmission Date: 20160815
  Serious: Yes (Hospitalization, Other)
  Sender: FDA-Public Use
  Company Number: PHHO2015PL019917

PATIENT
  Age: 67 Year
  Sex: Male
  Weight: 60 kg

DRUGS (13)
  1. ELTROMBOPAG [Suspect]
     Active Substance: ELTROMBOPAG
     Indication: MYELODYSPLASTIC SYNDROME
     Dosage: UNK
     Route: 048
  2. PEFLOKSACYNA [Concomitant]
     Indication: PROPHYLAXIS
     Dosage: 400 MG, Q6H
     Route: 048
     Dates: start: 20151125
  3. BISEPTOL [Concomitant]
     Active Substance: SULFAMETHOXAZOLE\TRIMETHOPRIM
     Indication: PRODUCT USED FOR UNKNOWN INDICATION
     Route: 065
  4. ALBUMIN [Concomitant]
     Active Substance: ALBUMIN HUMAN
     Indication: HYPOALBUMINAEMIA
     Dosage: 100 MG, QD
     Route: 042
     Dates: start: 20160105, end: 20160114
  5. MIDAZOLAM [Concomitant]
     Active Substance: MIDAZOLAM\MIDAZOLAM HYDROCHLORIDE
     Indication: PREMEDICATION
     Dosage: 7.5 MG, ONCE/SINGLE
     Route: 048
     Dates: start: 20160115, end: 20160115
  6. ENOXAPARIN [Concomitant]
     Active Substance: ENOXAPARIN
     Indication: PROPHYLAXIS
     Dosage: 0.6 ML, BID
     Route: 058
     Dates: start: 20160110, end: 20160114
  7. COMPARATOR AZACITIDINE [Suspect]
     Active Substance: AZACITIDINE
     Indication: MYELODYSPLASTIC SYNDROME
     Dosage: 892.5 MG, UNK (TOTAL DOSE)
     Route: 065
     Dates: start: 20151103, end: 20151111
  8. HALOPERIDOL. [Concomitant]
     Active Substance: HALOPERIDOL
     Indication: PROPHYLAXIS
     Dosage: 0.5 ML, BID
     Route: 048
     Dates: start: 20160114, end: 20160114
  9. COMPARATOR AZACITIDINE [Suspect]
     Active Substance: AZACITIDINE
     Dosage: 861 MG, UNK (TOTAL DOSE)
     Route: 065
     Dates: start: 20151201, end: 20151209
  10. ATROPIN [Concomitant]
     Active Substance: ATROPINE
     Indication: PREMEDICATION
     Dosage: 0.5 MG, ONCE/SINGLE
     Route: 042
     Dates: start: 20160115, end: 20160115
  11. DOPAMIN [Concomitant]
     Active Substance: DOPAMINE HYDROCHLORIDE
     Indication: HYPOTONIA
     Dosage: 200 MG, UNK
     Route: 042
     Dates: start: 20160106, end: 20160112
  12. RELANIUM [Concomitant]
     Active Substance: DIAZEPAM
     Indication: PROPHYLAXIS
     Dosage: 5 MG, ONCE/SINGLE
     Route: 042
     Dates: start: 20160114, end: 20160114
  13. HEPARIN [Suspect]
     Active Substance: HEPARIN SODIUM
     Indication: ARRHYTHMIA PROPHYLAXIS
     Route: 065

REACTIONS (5)
  - Lung infection [Recovered/Resolved]
  - Atrial fibrillation [Recovered/Resolved]
  - Pyrexia [Recovered/Resolved]
  - Febrile neutropenia [Recovered/Resolved]
  - Upper gastrointestinal haemorrhage [Recovered/Resolved]

NARRATIVE: CASE EVENT DATE: 20151124
